FAERS Safety Report 4973784-1 (Version None)
Quarter: 2006Q2

REPORT INFORMATION
  Report Type: 
  Country: None (occurrence: None)
  Receive Date: 20060414
  Receipt Date: 20051212
  Transmission Date: 20061013
  Serious: Yes (Hospitalization, Disabling)
  Sender: FDA-Public Use
  Company Number: US-MERCK-0512USA02160

PATIENT
  Age: 62 Year
  Sex: Male
  Weight: 103 kg

DRUGS (19)
  1. VIOXX [Suspect]
     Indication: SCIATICA
     Route: 048
     Dates: start: 19990929, end: 19991019
  2. VIOXX [Suspect]
     Route: 048
     Dates: start: 20010507, end: 20030422
  3. VIOXX [Suspect]
     Indication: ARTHRITIS
     Route: 048
     Dates: start: 19990929, end: 19991019
  4. VIOXX [Suspect]
     Route: 048
     Dates: start: 20010507, end: 20030422
  5. CELEBREX [Concomitant]
     Indication: ARTHRITIS
     Route: 065
  6. ACCUPRIL [Concomitant]
     Indication: HYPERTENSION
     Route: 065
     Dates: start: 19910501, end: 20030401
  7. TERAZOSIN HYDROCHLORIDE [Concomitant]
     Route: 065
  8. PRAVACHOL [Concomitant]
     Indication: HYPERCHOLESTEROLAEMIA
     Route: 065
     Dates: start: 19910501, end: 20030401
  9. HYDROCODONE BITARTRATE [Concomitant]
     Route: 065
  10. PROMETHAZINE [Concomitant]
     Route: 065
  11. ORPHENADRINE [Concomitant]
     Route: 065
  12. SYNVISC [Concomitant]
     Route: 065
  13. PREVIDENT 5000 PLUS [Concomitant]
     Route: 065
  14. AUGMENTIN '125' [Concomitant]
     Route: 065
  15. CEPHALEXIN [Concomitant]
     Route: 065
  16. TIZANIDINE HYDROCHLORIDE [Concomitant]
     Route: 065
  17. ZITHROMAX [Concomitant]
     Route: 065
  18. AMOXICILLIN [Concomitant]
     Route: 065
  19. TOPROL-XL [Concomitant]
     Route: 065

REACTIONS (5)
  - ARTHROPATHY [None]
  - CORONARY ARTERY OCCLUSION [None]
  - DIZZINESS [None]
  - FATIGUE [None]
  - HOSPITALISATION [None]
